FAERS Safety Report 5097748-5 (Version None)
Quarter: 2006Q3

REPORT INFORMATION
  Report Type: 
  Country: None (occurrence: None)
  Receive Date: 20060905
  Receipt Date: 20060821
  Transmission Date: 20061208
  Serious: Yes (Hospitalization, Congenital Anomaly)
  Sender: FDA-Public Use
  Company Number: B0435667A

PATIENT
  Sex: Female

DRUGS (6)
  1. VENTOLIN HFA [Suspect]
     Dosage: TRANSPLACENTARY
     Route: 064
  2. METHYLPREDNISOLONE [Suspect]
     Dosage: TRANSPLACENTARY
     Route: 064
  3. AMINOPHYLLINE (AMINOPHYLLINE) [Suspect]
     Dosage: TRANSPLACENTARY
     Route: 064
  4. MIDAZOLAM HCL [Suspect]
     Dosage: TRANSPLACENTARY
     Route: 064
  5. BUPRENORPHINE HCL (BUPRENORPHINE HCL) [Suspect]
     Dosage: TRANSPLACENTARY
     Route: 064
  6. PENTAZOCINE LACTATE [Suspect]
     Dosage: TRANSPLACENTARY
     Route: 064

REACTIONS (9)
  - APGAR SCORE ABNORMAL [None]
  - BREECH DELIVERY [None]
  - CEREBRAL PALSY [None]
  - DIPLEGIA [None]
  - DRUG EXPOSURE DURING PREGNANCY [None]
  - FOETAL DISTRESS SYNDROME [None]
  - MATERNAL CONDITION AFFECTING FOETUS [None]
  - NEONATAL ASPIRATION [None]
  - PERIVENTRICULAR LEUKOMALACIA [None]
